FAERS Safety Report 6260965-2 (Version None)
Quarter: 2009Q3

REPORT INFORMATION
  Report Type: 
  Country: None (occurrence: None)
  Receive Date: 20090709
  Receipt Date: 20090706
  Transmission Date: 20100115
  Serious: Yes (Other)
  Sender: FDA-Public Use
  Company Number: GB-BRISTOL-MYERS SQUIBB COMPANY-14692107

PATIENT
  Age: 33 Year
  Sex: Female

DRUGS (5)
  1. EFAVIRENZ [Suspect]
     Indication: HIV INFECTION
     Dates: start: 20021001, end: 20070816
  2. KALETRA [Suspect]
     Indication: HIV INFECTION
     Dates: start: 20070920
  3. COMBIVIR [Suspect]
     Indication: HIV INFECTION
     Dates: start: 20070801, end: 20070905
  4. KIVEXA [Suspect]
     Indication: HIV INFECTION
     Dates: start: 20070101, end: 20070901
  5. VIRAMUNE [Suspect]
     Indication: HIV INFECTION
     Dates: start: 20070801, end: 20070905

REACTIONS (2)
  - ABORTION INDUCED [None]
  - PREGNANCY [None]
